FAERS Safety Report 9839993 (Version 1)
Quarter: 2013Q4

REPORT INFORMATION
  Report Type: Spontaneous
  Country: US (occurrence: None)
  Receive Date: 20131211
  Receipt Date: 20131211
  Transmission Date: 20140711
  Serious: No
  Sender: FDA-Public Use
  Company Number: ALL1-2012-02473

PATIENT
  Age: 33 Year
  Sex: Male
  Weight: 89.8 kg

DRUGS (5)
  1. FIRAZYR (ICATIBANT) SOLUTION FOR INJECTION IN PRE-FILLED SYRINGE [Suspect]
     Indication: HEREDITARY ANGIOEDEMA
     Route: 058
     Dates: start: 20120116, end: 20120116
  2. CINRYZE (COMPLEMENT C1 ESTERASE INHIBITOR) [Suspect]
     Route: 041
     Dates: start: 20100914, end: 201201
  3. KALBITOR (ECALLANTIDE) [Suspect]
     Dosage: UNK, UNK (GIVEN AS NEEDED 4 TIMES)
     Dates: start: 20120116, end: 20120116
  4. BERINERTP C1 (COMPLEMENT C1 ESTERASE INHIBITOR) [Suspect]
     Route: 042
     Dates: start: 20120116, end: 20120116
  5. PERCOCET HYDROCHLORIDE, OXYCODONE [Concomitant]

REACTIONS (1)
  - Drug ineffective [None]
